FAERS Safety Report 12636541 (Version 1)
Quarter: 2016Q3

REPORT INFORMATION
  Report Type: Spontaneous
  Country: US (occurrence: US)
  Receive Date: 20160809
  Receipt Date: 20160809
  Transmission Date: 20161109
  Serious: No
  Sender: FDA-Public Use
  Company Number: US-BAYER-2016-146898

PATIENT
  Age: 50 Year
  Sex: Female
  Weight: 86.17 kg

DRUGS (3)
  1. ZOLOFT [Concomitant]
     Active Substance: SERTRALINE HYDROCHLORIDE
  2. ALEVE [Suspect]
     Active Substance: NAPROXEN SODIUM
     Indication: URINARY TRACT INFECTION
     Dosage: 4 DF, UNK
     Route: 048
     Dates: start: 20160727, end: 20160727
  3. ALEVE [Suspect]
     Active Substance: NAPROXEN SODIUM
     Indication: URINARY TRACT INFECTION
     Dosage: 2 DF, QD
     Route: 048

REACTIONS (2)
  - Product use issue [None]
  - Product use issue [None]

NARRATIVE: CASE EVENT DATE: 20160727
